FAERS Safety Report 5668282-6 (Version None)
Quarter: 2008Q1

REPORT INFORMATION
  Report Type: 
  Country: None (occurrence: None)
  Receive Date: 20080315
  Receipt Date: 20080215
  Transmission Date: 20080703
  Serious: No
  Sender: FDA-Public Use
  Company Number: US-ABBOTT-08P-163-0439380-00

PATIENT
  Sex: Male
  Weight: 88.984 kg

DRUGS (4)
  1. HUMIRA [Suspect]
     Indication: CROHN'S DISEASE
     Route: 058
     Dates: start: 20070801, end: 20070801
  2. HUMIRA [Suspect]
     Route: 058
  3. HUMIRA [Suspect]
     Route: 058
  4. MESALAMINE [Concomitant]
     Indication: CROHN'S DISEASE
     Route: 048

REACTIONS (1)
  - ACCIDENTAL EXPOSURE [None]
